FAERS Safety Report 7405435-0 (Version None)
Quarter: 2011Q2

REPORT INFORMATION
  Report Type: 
  Country: None (occurrence: None)
  Receive Date: 20110411
  Receipt Date: 20110404
  Transmission Date: 20111010
  Serious: Yes (Hospitalization, Other)
  Sender: FDA-Public Use
  Company Number: NL-US-EMD SERONO, INC.-7051331

PATIENT
  Sex: Male

DRUGS (2)
  1. VITAMIN B-12 [Concomitant]
     Indication: VITAMIN B12 ABNORMAL
     Route: 048
     Dates: start: 20091101
  2. REBIF [Suspect]
     Indication: MULTIPLE SCLEROSIS
     Route: 058
     Dates: start: 20090520, end: 20091123

REACTIONS (2)
  - MUSCLE SPASMS [None]
  - URINARY RETENTION [None]
